FAERS Safety Report 18855520 (Version 1)
Quarter: 2021Q1

REPORT INFORMATION
  Report Type: Spontaneous
  Country: DE (occurrence: DE)
  Receive Date: 20210206
  Receipt Date: 20210206
  Transmission Date: 20210420
  Serious: Yes (Hospitalization)
  Sender: FDA-Public Use
  Company Number: DE-AUROBINDO-AUR-APL-2021-004737

PATIENT
  Age: 15 Year
  Sex: Male
  Weight: 68 kg

DRUGS (2)
  1. ZOLPIDEM [Suspect]
     Active Substance: ZOLPIDEM TARTRATE
     Indication: SLEEP DISORDER
     Dosage: 10 MILLIGRAM, ONCE A DAY
     Route: 048
  2. ZOPICLONE 7.5MG [Suspect]
     Active Substance: ZOPICLONE
     Indication: SLEEP DISORDER
     Dosage: 0.5 DOSAGE FORM, ONCE A DAY
     Route: 048

REACTIONS (3)
  - Dizziness [Unknown]
  - Headache [Unknown]
  - Vision blurred [Unknown]

NARRATIVE: CASE EVENT DATE: 20190527
